FAERS Safety Report 9755678 (Version 1)
Quarter: 2013Q4

REPORT INFORMATION
  Report Type: Spontaneous
  Country: US (occurrence: US)
  Receive Date: 20131213
  Receipt Date: 20131213
  Transmission Date: 20140711
  Serious: No
  Sender: FDA-Public Use
  Company Number: US-GLAXOSMITHKLINE-A1022451A

PATIENT
  Age: 59 Year
  Sex: Female

DRUGS (2)
  1. NICODERM CQ 7MG [Suspect]
     Indication: EX-TOBACCO USER
     Dates: start: 20080828
  2. NICODERM CQ CLEAR 7MG [Suspect]
     Indication: EX-TOBACCO USER
     Dates: start: 20080828

REACTIONS (3)
  - Nightmare [Recovered/Resolved]
  - Nicotine dependence [Recovered/Resolved]
  - Food craving [Recovered/Resolved]
